FAERS Safety Report 5233878-2 (Version None)
Quarter: 2007Q1

REPORT INFORMATION
  Report Type: 
  Country: None (occurrence: None)
  Receive Date: 20070208
  Receipt Date: 20070129
  Transmission Date: 20070707
  Serious: Yes (Death)
  Sender: FDA-Public Use
  Company Number: JP-SANOFI-SYNTHELABO-A01200611285

PATIENT
  Age: 75 Year
  Sex: Male

DRUGS (20)
  1. FLUOROURACIL [Suspect]
     Dosage: 450 MG/BODY IN BOLUS THEN 2750 MG/BODY AS INFUSION
     Route: 041
     Dates: start: 20061225, end: 20061225
  2. LEUCOVORIN CALCIUM [Suspect]
     Route: 041
     Dates: start: 20061225, end: 20061225
  3. OXALIPLATIN [Suspect]
     Indication: COLON CANCER
     Route: 041
     Dates: start: 20061225, end: 20061225
  4. DEPAS [Concomitant]
     Route: 048
  5. ASPIRIN [Concomitant]
     Route: 048
  6. TAKEPRON [Concomitant]
     Route: 048
  7. DIGITOXIN TAB [Concomitant]
     Route: 048
  8. METLIGINE [Concomitant]
     Route: 048
  9. RISUMIC [Concomitant]
     Route: 048
  10. ALOSENN [Concomitant]
     Route: 048
  11. AMOBAN [Concomitant]
     Route: 048
  12. RISUMIC [Concomitant]
     Route: 048
  13. ALESION [Concomitant]
     Route: 048
  14. CALTAN [Concomitant]
     Route: 048
  15. MARZULENE-S [Concomitant]
     Route: 048
  16. LASIX [Concomitant]
     Route: 048
  17. ARGAMATE [Concomitant]
     Dosage: 3DF
     Route: 048
  18. ADALAT [Concomitant]
     Route: 048
  19. KYTRIL [Concomitant]
     Dosage: 1DF
     Route: 041
     Dates: start: 20061225, end: 20061225
  20. DEXAMETHASONE TAB [Concomitant]
     Route: 041
     Dates: start: 20061225, end: 20061225

REACTIONS (9)
  - ARTERIOSCLEROSIS [None]
  - DIALYSIS [None]
  - GASTRIC POLYPS [None]
  - GOITRE [None]
  - HYPERAMMONAEMIA [None]
  - METABOLIC ENCEPHALOPATHY [None]
  - NAUSEA [None]
  - RENAL FAILURE CHRONIC [None]
  - RESPIRATORY ARREST [None]
